FAERS Safety Report 21238635 (Version 1)
Quarter: 2022Q3

REPORT INFORMATION
  Report Type: Report from Study
  Country: IL (occurrence: IL)
  Receive Date: 20220822
  Receipt Date: 20220822
  Transmission Date: 20221027
  Serious: Yes (Hospitalization)
  Sender: FDA-Public Use
  Company Number: IL-SAARTEMIS-SAC202010260034

PATIENT
  Age: 35 Year
  Sex: Male

DRUGS (1)
  1. ALEMTUZUMAB [Suspect]
     Active Substance: ALEMTUZUMAB
     Indication: Multiple sclerosis
     Dosage: 12 MG, QD
     Route: 041
     Dates: start: 20201012, end: 20201014

REACTIONS (19)
  - Platelet count abnormal [Not Recovered/Not Resolved]
  - Petechiae [Not Recovered/Not Resolved]
  - Infusion site haematoma [Recovered/Resolved]
  - Rash [Recovered/Resolved]
  - Oropharyngeal pain [Recovering/Resolving]
  - Hyperhidrosis [Not Recovered/Not Resolved]
  - Asthenia [Not Recovered/Not Resolved]
  - Blood thyroid stimulating hormone abnormal [Not Recovered/Not Resolved]
  - Thyroxine free abnormal [Not Recovered/Not Resolved]
  - Tri-iodothyronine free abnormal [Not Recovered/Not Resolved]
  - Pyrexia [Recovering/Resolving]
  - Fatigue [Not Recovered/Not Resolved]
  - Heart rate increased [Not Recovered/Not Resolved]
  - Urine uric acid abnormal [Unknown]
  - Urea urine abnormal [Unknown]
  - Blood uric acid increased [Not Recovered/Not Resolved]
  - Blood urea increased [Not Recovered/Not Resolved]
  - Protein urine present [Not Recovered/Not Resolved]
  - Red blood cells urine positive [Unknown]

NARRATIVE: CASE EVENT DATE: 20201015
